FAERS Safety Report 11345674 (Version 1)
Quarter: 2015Q3

REPORT INFORMATION
  Report Type: Spontaneous
  Country: JP (occurrence: JP)
  Receive Date: 20150806
  Receipt Date: 20150806
  Transmission Date: 20151125
  Serious: Yes (Hospitalization)
  Sender: FDA-Public Use
  Company Number: JP-ASTRAZENECA-2015SE75328

PATIENT
  Sex: Female

DRUGS (6)
  1. DANTRIUM [Suspect]
     Active Substance: DANTROLENE SODIUM
     Indication: DYSKINESIA
     Route: 065
  2. SULPIRIDE [Suspect]
     Active Substance: SULPIRIDE
     Indication: DEPRESSION
     Route: 048
  3. ARIPIPRAZOLE. [Concomitant]
     Active Substance: ARIPIPRAZOLE
     Route: 048
  4. BROMPERIDOL [Concomitant]
     Active Substance: BROMPERIDOL
     Route: 048
  5. QUETIAPINE [Suspect]
     Active Substance: QUETIAPINE
     Indication: PRODUCT USED FOR UNKNOWN INDICATION
     Dosage: TAPERED AFTER HOSPITALISATION
     Route: 048
  6. MAPROTILINE [Concomitant]
     Active Substance: MAPROTILINE

REACTIONS (5)
  - Dysphagia [Not Recovered/Not Resolved]
  - Off label use [Unknown]
  - Tardive dyskinesia [Unknown]
  - Dystonia [Recovering/Resolving]
  - Pneumonia aspiration [Recovering/Resolving]
